FAERS Safety Report 8270755-7 (Version None)
Quarter: 2012Q2

REPORT INFORMATION
  Report Type: 
  Country: None (occurrence: None)
  Receive Date: 20120410
  Receipt Date: 20120402
  Transmission Date: 20120825
  Serious: Yes (Hospitalization)
  Sender: FDA-Public Use
  Company Number: US-BAYER-2012-009982

PATIENT
  Age: 40 Year
  Sex: Female
  Weight: 73.923 kg

DRUGS (14)
  1. UNIPHYL [Concomitant]
     Indication: ASTHMA
     Dosage: UNK
     Dates: start: 19980101, end: 20100101
  2. QVAR 40 [Concomitant]
  3. YASMIN [Suspect]
     Indication: DYSMENORRHOEA
     Dosage: UNK UNK, QD
     Route: 048
     Dates: start: 20040101, end: 20070101
  4. ASPIRIN [Concomitant]
  5. ADVAIR DISKUS 100/50 [Concomitant]
     Indication: ASTHMA
     Dosage: UNK
     Dates: start: 20080101
  6. VENTOLIN [Concomitant]
     Indication: ASTHMA
     Dosage: UNK
     Dates: start: 20080101
  7. SEMPREX-D [Concomitant]
     Indication: MULTIPLE ALLERGIES
     Dosage: UNK
     Dates: start: 20071101, end: 20111001
  8. TRAMADOL HCL [Concomitant]
     Indication: PAIN
     Dosage: UNK
     Dates: start: 20080101, end: 20110101
  9. YAZ [Suspect]
     Indication: PREMENSTRUAL SYNDROME
  10. YASMIN [Suspect]
     Indication: PREMENSTRUAL SYNDROME
  11. CITALOPRAM HYDROBROMIDE [Concomitant]
  12. YAZ [Suspect]
     Indication: DYSMENORRHOEA
     Dosage: UNK UNK, QD
     Route: 048
     Dates: start: 20070101, end: 20100206
  13. VERAPAMIL [Concomitant]
  14. PROAIR HFA [Concomitant]
     Indication: ASTHMA
     Dosage: UNK
     Dates: start: 20080101

REACTIONS (10)
  - DEEP VEIN THROMBOSIS [None]
  - PAIN [None]
  - RESPIRATORY ARREST [None]
  - PSYCHOLOGICAL TRAUMA [None]
  - ANXIETY [None]
  - DYSPNOEA [None]
  - PULMONARY EMBOLISM [None]
  - CHEST PAIN [None]
  - FEAR [None]
  - ANHEDONIA [None]
